FAERS Safety Report 5787184-8 (Version None)
Quarter: 2008Q2

REPORT INFORMATION
  Report Type: 
  Country: None (occurrence: None)
  Receive Date: 20080625
  Receipt Date: 20080613
  Transmission Date: 20081010
  Serious: Yes (Other)
  Sender: FDA-Public Use
  Company Number: US-WYE-H04464608

PATIENT
  Age: 33 Year
  Sex: Female

DRUGS (2)
  1. EFFEXOR XR [Suspect]
     Indication: DEPRESSION
     Route: 048
     Dates: start: 20080409, end: 20080501
  2. EFFEXOR XR [Suspect]
     Indication: ANXIETY
     Dosage: TITRATED UP TO 225 MG DAILY
     Route: 048
     Dates: start: 20080501

REACTIONS (4)
  - COUGH [None]
  - FATIGUE [None]
  - RASH PAPULAR [None]
  - SARCOIDOSIS [None]
